FAERS Safety Report 8616251-6 (Version None)
Quarter: 2012Q3

REPORT INFORMATION
  Report Type: 
  Country: None (occurrence: None)
  Receive Date: 20120823
  Receipt Date: 20120815
  Transmission Date: 20120928
  Serious: Yes (Other)
  Sender: FDA-Public Use
  Company Number: US-009507513-2011SP058259

PATIENT

DRUGS (3)
  1. TELAPREVIR [Concomitant]
     Indication: HEPATITIS C
     Dosage: UNK UNK, UNKNOWN
     Route: 065
     Dates: start: 20110908, end: 20111201
  2. PEG-INTRON [Suspect]
     Indication: HEPATITIS C
     Dosage: UNK UNK, UNKNOWN
     Route: 065
     Dates: start: 20110908, end: 20120809
  3. RIBAVIRIN [Suspect]
     Dosage: UNK UNK, UNKNOWN
     Route: 065
     Dates: start: 20110908, end: 20120809

REACTIONS (16)
  - ANAEMIA [None]
  - WHITE BLOOD CELL COUNT DECREASED [None]
  - ALOPECIA [None]
  - MENTAL IMPAIRMENT [None]
  - ASTHENIA [None]
  - VEIN DISORDER [None]
  - DIARRHOEA [None]
  - WEIGHT DECREASED [None]
  - FEELING ABNORMAL [None]
  - HYPOAESTHESIA [None]
  - MALAISE [None]
  - RED BLOOD CELL COUNT DECREASED [None]
  - VOMITING [None]
  - NON-CONSUMMATION [None]
  - FATIGUE [None]
  - NAUSEA [None]
